FAERS Safety Report 4590830-8 (Version None)
Quarter: 2005Q1

REPORT INFORMATION
  Report Type: 
  Country: None (occurrence: None)
  Receive Date: 20050225
  Receipt Date: 20050217
  Transmission Date: 20050727
  Serious: Yes (Hospitalization)
  Sender: FDA-Public Use
  Company Number: US-JNJFOC-20050204554

PATIENT
  Sex: Female

DRUGS (4)
  1. DURAGESIC-100 [Suspect]
     Route: 062
     Dates: start: 20040201
  2. DURAGESIC-100 [Suspect]
     Route: 062
     Dates: start: 20040201
  3. DURAGESIC-100 [Suspect]
     Route: 062
     Dates: start: 20040201
  4. SOMA [Concomitant]
     Route: 049

REACTIONS (6)
  - COLD SWEAT [None]
  - HYPERHIDROSIS [None]
  - INTERVERTEBRAL DISC DEGENERATION [None]
  - NERVOUSNESS [None]
  - TREMOR [None]
  - VOMITING [None]
